FAERS Safety Report 8780148 (Version 1)
Quarter: 2012Q4

REPORT INFORMATION
  Report Type: Spontaneous
  Country: US (occurrence: None)
  Receive Date: 20120829
  Receipt Date: 20120829
  Transmission Date: 20130627
  Serious: Yes (Hospitalization)
  Sender: FDA-Public Use
  Company Number: 2012-01266

PATIENT
  Sex: Male

DRUGS (1)
  1. LOVASTATIN [Suspect]
     Indication: DRUG USE FOR UNKNOWN INDICATION

REACTIONS (4)
  - Arrhythmia [None]
  - Coronary artery occlusion [None]
  - Myocardial infarction [None]
  - Blood triglycerides increased [None]
